FAERS Safety Report 11844559 (Version 1)
Quarter: 2015Q4

REPORT INFORMATION
  Report Type: Spontaneous
  Country: US (occurrence: None)
  Receive Date: 20151216
  Receipt Date: 20151216
  Transmission Date: 20160305
  Serious: Yes (Disabling)
  Sender: FDA-Public Use
  Company Number: None

PATIENT
  Age: 75 Year
  Sex: Female
  Weight: 63.5 kg

DRUGS (12)
  1. CALCIUM + D [Concomitant]
     Active Substance: CALCIUM\VITAMIN D
  2. VIT. B SUPER COMPLEX [Concomitant]
  3. CRESTOR [Concomitant]
     Active Substance: ROSUVASTATIN CALCIUM
  4. OMEPRAZOLE. [Concomitant]
     Active Substance: OMEPRAZOLE
  5. VANCOMYCIN [Concomitant]
     Active Substance: VANCOMYCIN
  6. ALPHA LIPOIC ACID [Concomitant]
     Active Substance: .ALPHA.-LIPOIC ACID
  7. PROLIA [Concomitant]
     Active Substance: DENOSUMAB
  8. FLOVENT DISK [Concomitant]
  9. ALLERGY SHOTS [Concomitant]
     Active Substance: UNSPECIFIED INGREDIENT
  10. PROBIOTIC [Concomitant]
     Active Substance: PROBIOTICS NOS
  11. MULTIVITAMIN [Concomitant]
     Active Substance: VITAMINS
  12. CLINDAMYCIN HCL [Suspect]
     Active Substance: CLINDAMYCIN HYDROCHLORIDE
     Indication: PAIN
     Dosage: ONE, EVERY 6 HRS. #28 UNTIL FINISHED 28
     Dates: start: 20150721, end: 20150728

REACTIONS (3)
  - Change of bowel habit [None]
  - Diarrhoea [None]
  - Clostridium test positive [None]

NARRATIVE: CASE EVENT DATE: 20150721
